FAERS Safety Report 7493639-0 (Version None)
Quarter: 2011Q2

REPORT INFORMATION
  Report Type: 
  Country: None (occurrence: None)
  Receive Date: 20110520
  Receipt Date: 20110511
  Transmission Date: 20111010
  Serious: Yes (Other)
  Sender: FDA-Public Use
  Company Number: JP-SANOFI-AVENTIS-2011SA021982

PATIENT
  Age: 88 Year
  Sex: Male
  Weight: 40 kg

DRUGS (4)
  1. TRAPIDIL [Concomitant]
     Indication: ANGINA PECTORIS
     Route: 048
  2. OMEPRAZOLE [Concomitant]
     Indication: GASTRITIS
     Route: 065
  3. ZOLPIDEM [Suspect]
     Route: 048
     Dates: start: 20110329, end: 20110329
  4. YODEL [Concomitant]
     Indication: CONSTIPATION
     Route: 065

REACTIONS (4)
  - RESPIRATORY DEPRESSION [None]
  - OXYGEN SATURATION DECREASED [None]
  - PNEUMONIA ASPIRATION [None]
  - SOMNOLENCE [None]
